FAERS Safety Report 5530050-3 (Version None)
Quarter: 2007Q4

REPORT INFORMATION
  Report Type: 
  Country: None (occurrence: None)
  Receive Date: 20071120
  Receipt Date: 20071107
  Transmission Date: 20080405
  Serious: Yes (Other)
  Sender: FDA-Public Use
  Company Number: THYM-11593

PATIENT
  Age: 32 Year
  Sex: Female

DRUGS (6)
  1. THYMOGLOBULIN [Suspect]
     Indication: PANCREAS TRANSPLANT
     Dosage: 5 MG QD IV
     Route: 042
     Dates: end: 20071106
  2. THYMOGLOBULIN [Suspect]
     Indication: RENAL TRANSPLANT
     Dosage: 5 MG QD IV
     Route: 042
     Dates: end: 20071106
  3. PROGRAF [Concomitant]
  4. CELLCEPT [Concomitant]
  5. FLUCONAZOLE [Concomitant]
  6. CLOTRIMAZOLE [Concomitant]

REACTIONS (1)
  - SERUM SICKNESS [None]
